FAERS Safety Report 6775458-3 (Version None)
Quarter: 2010Q2

REPORT INFORMATION
  Report Type: 
  Country: None (occurrence: None)
  Receive Date: 20100617
  Receipt Date: 20100607
  Transmission Date: 20101027
  Serious: Yes (Hospitalization)
  Sender: FDA-Public Use
  Company Number: IT-PFIZER INC-2010048035

PATIENT
  Age: 83 Year
  Sex: Male

DRUGS (8)
  1. ADRIBLASTINA [Suspect]
     Indication: B-CELL LYMPHOMA
     Dosage: 75 MG, CYCLIC
     Route: 042
     Dates: start: 20100219, end: 20100402
  2. MABTHERA [Suspect]
     Indication: B-CELL LYMPHOMA
     Dosage: 750 MG, CYCLIC
     Route: 042
     Dates: start: 20100219, end: 20100402
  3. ENDOXAN [Suspect]
     Indication: B-CELL LYMPHOMA
     Dosage: 1125 MG, CYCLIC
     Route: 042
     Dates: start: 20100219, end: 20100402
  4. VINCRISTINE [Suspect]
     Indication: B-CELL LYMPHOMA
     Dosage: 1.5 MG, CYCLIC
     Route: 042
     Dates: start: 20100219, end: 20100402
  5. LASIX [Concomitant]
  6. TRIATEC [Concomitant]
  7. BISOPROLOL FUMARATE [Concomitant]
  8. MONOKET [Concomitant]

REACTIONS (2)
  - CARDIAC FAILURE [None]
  - SUBENDOCARDIAL ISCHAEMIA [None]
